FAERS Safety Report 6900364-0 (Version None)
Quarter: 2010Q3

REPORT INFORMATION
  Report Type: 
  Country: None (occurrence: None)
  Receive Date: 20100803
  Receipt Date: 20100722
  Transmission Date: 20110219
  Serious: Yes (Hospitalization)
  Sender: FDA-Public Use
  Company Number: PHHY2010JP43499

PATIENT
  Age: 72 Year
  Sex: Male

DRUGS (1)
  1. LAMISIL [Suspect]
     Dosage: 125 MG DAILY
     Route: 048
     Dates: start: 20100421

REACTIONS (3)
  - CHROMATURIA [None]
  - GALLBLADDER POLYP [None]
  - SURGERY [None]
